FAERS Safety Report 24609378 (Version 1)
Quarter: 2024Q4

REPORT INFORMATION
  Report Type: Spontaneous
  Country: US (occurrence: US)
  Receive Date: 20241112
  Receipt Date: 20241112
  Transmission Date: 20250114
  Serious: No
  Sender: BAYER HEALTHCARE LLC
  Company Number: US-BAYER-2024A159100

PATIENT

DRUGS (2)
  1. CLARITIN [Suspect]
     Active Substance: LORATADINE
     Indication: Food allergy
     Dosage: 1 DF
     Route: 065
     Dates: start: 20241101
  2. CLARITIN [Suspect]
     Active Substance: LORATADINE
     Indication: Food allergy
     Dosage: 1 DF
     Route: 065
     Dates: start: 20241105

REACTIONS (1)
  - Drug effective for unapproved indication [None]
